FAERS Safety Report 19309237 (Version 2)
Quarter: 2021Q2

REPORT INFORMATION
  Report Type: Spontaneous
  Country: GB (occurrence: GB)
  Receive Date: 20210526
  Receipt Date: 20210607
  Transmission Date: 20210717
  Serious: Yes (Other)
  Sender: FDA-Public Use
  Company Number: GB-PERRIGO-21GB006502

PATIENT

DRUGS (7)
  1. AVAMYS [Concomitant]
     Active Substance: FLUTICASONE FUROATE
     Indication: ILL-DEFINED DISORDER
     Dosage: USE ONCE DAILY
     Dates: start: 20210512
  2. LORATADINE. [Suspect]
     Active Substance: LORATADINE
     Indication: ILL-DEFINED DISORDER
     Route: 065
     Dates: start: 20210512
  3. CLENIL MODULITE [Concomitant]
     Active Substance: BECLOMETHASONE DIPROPIONATE
     Indication: ILL-DEFINED DISORDER
     Dosage: UNK, BID (ONE PUFF BD)/2 DOSAGE FORMS DAILY; ONE PUFF BD
     Route: 065
     Dates: start: 20190325
  4. MOMETASONE [Concomitant]
     Active Substance: MOMETASONE
     Indication: ILL-DEFINED DISORDER
     Dosage: UNK, TWO SPRAYS DAILY/2 DOSAGE FORMS DAILY; SPRAYS
     Route: 045
     Dates: start: 20210329, end: 20210426
  5. AVEENO [Concomitant]
     Active Substance: DIMETHICONE\HOMOSALATE\OCTINOXATE\OCTISALATE\TITANIUM DIOXIDE
     Indication: ILL-DEFINED DISORDER
     Dosage: USE AS DIRECTED
     Route: 065
     Dates: start: 20210225, end: 20210325
  6. BECLOMETASONE [Concomitant]
     Active Substance: BECLOMETHASONE DIPROPIONATE
     Indication: ILL-DEFINED DISORDER
     Dosage: TWO SPRAYS (100MICROGRAMS) INTO EACH NOSTRIL TW...
     Dates: start: 20210225, end: 20210325
  7. FEXOFENADINE [Concomitant]
     Active Substance: FEXOFENADINE HYDROCHLORIDE
     Indication: ILL-DEFINED DISORDER
     Dosage: 300 MG, BID
     Route: 065
     Dates: start: 20210512

REACTIONS (2)
  - Lip swelling [Recovered/Resolved]
  - Rash [Unknown]

NARRATIVE: CASE EVENT DATE: 20210512
